FAERS Safety Report 17622863 (Version 2)
Quarter: 2020Q2

REPORT INFORMATION
  Report Type: Spontaneous
  Country: US (occurrence: US)
  Receive Date: 20200403
  Receipt Date: 20200408
  Transmission Date: 20200713
  Serious: No
  Sender: FDA-Public Use
  Company Number: US-PFIZER INC-2020136649

PATIENT
  Age: 61 Year
  Sex: Male

DRUGS (2)
  1. PROTONIX [Suspect]
     Active Substance: PANTOPRAZOLE SODIUM
     Indication: OESOPHAGITIS
     Dosage: UNK
  2. XELODA [Interacting]
     Active Substance: CAPECITABINE
     Dosage: UNK

REACTIONS (1)
  - Drug interaction [Unknown]
